FAERS Safety Report 17575530 (Version 1)
Quarter: 2020Q1

REPORT INFORMATION
  Report Type: Spontaneous
  Country: US (occurrence: US)
  Receive Date: 20200324
  Receipt Date: 20200324
  Transmission Date: 20200409
  Serious: No
  Sender: FDA-Public Use
  Company Number: US-PFIZER INC-2020121097

PATIENT
  Sex: Male

DRUGS (1)
  1. ADVIL LIQUI-GELS [Suspect]
     Active Substance: IBUPROFEN
     Indication: PYREXIA
     Dosage: 3 CAPSULES EVERY 6 HOURS

REACTIONS (3)
  - Overdose [Unknown]
  - Flatulence [Unknown]
  - Diarrhoea [Unknown]
